FAERS Safety Report 24296248 (Version 4)
Quarter: 2024Q4

REPORT INFORMATION
  Report Type: Spontaneous
  Country: PL (occurrence: PL)
  Receive Date: 20240909
  Receipt Date: 20241203
  Transmission Date: 20250115
  Serious: Yes (Death)
  Sender: NOVARTIS
  Company Number: PL-002147023-NVSC2024PL179347

PATIENT
  Age: 70 Year
  Sex: Male

DRUGS (1)
  1. LEQVIO [Suspect]
     Active Substance: INCLISIRAN SODIUM
     Indication: Disease risk factor
     Dosage: UNK
     Route: 065
     Dates: start: 20230719

REACTIONS (2)
  - Myocardial infarction [Fatal]
  - Drug intolerance [Fatal]

NARRATIVE: CASE EVENT DATE: 20230719
